FAERS Safety Report 14442081 (Version 3)
Quarter: 2018Q2

REPORT INFORMATION
  Report Type: Spontaneous
  Country: JP (occurrence: JP)
  Receive Date: 20180125
  Receipt Date: 20180403
  Transmission Date: 20180711
  Serious: Yes (Hospitalization)
  Sender: FDA-Public Use
  Company Number: JP-009507513-1712JPN010528

PATIENT
  Age: 72 Year
  Sex: Female

DRUGS (7)
  1. SELTOUCH [Concomitant]
     Active Substance: FELBINAC
     Indication: BACK PAIN
     Dosage: UNK
     Route: 062
     Dates: end: 20171111
  2. CRAVIT [Suspect]
     Active Substance: LEVOFLOXACIN
     Indication: PYREXIA
     Dosage: UNK
     Route: 048
     Dates: start: 20171110, end: 20171111
  3. CEFTRIAXONE SODIUM. [Concomitant]
     Active Substance: CEFTRIAXONE SODIUM
     Indication: PYREXIA
     Dosage: UNK
     Route: 041
     Dates: start: 20171110, end: 20171110
  4. SAIKO-KEISHI-TO [Concomitant]
     Active Substance: HERBALS
     Indication: PYREXIA
     Dosage: UNK
     Route: 048
     Dates: end: 20171111
  5. EDIROL [Concomitant]
     Active Substance: ELDECALCITOL
     Indication: OSTEOPOROSIS
     Dosage: UNK
     Route: 048
     Dates: end: 20171111
  6. CALONAL [Concomitant]
     Active Substance: ACETAMINOPHEN
     Indication: PYREXIA
     Dosage: UNK
     Route: 048
     Dates: end: 20171111
  7. BONALON [Suspect]
     Active Substance: ALENDRONATE SODIUM
     Indication: OSTEOPOROSIS
     Dosage: 35 MG, PER WEEK
     Route: 048
     Dates: start: 20171107, end: 20171107

REACTIONS (1)
  - Drug eruption [Recovered/Resolved]

NARRATIVE: CASE EVENT DATE: 20171111
